FAERS Safety Report 9156932 (Version 1)
Quarter: 2013Q1

REPORT INFORMATION
  Report Type: Spontaneous
  Country: US (occurrence: None)
  Receive Date: 20130308
  Receipt Date: 20130308
  Transmission Date: 20140127
  Serious: Yes (Other)
  Sender: FDA-Public Use
  Company Number: None

PATIENT
  Age: 60 Year
  Sex: Male
  Weight: 81.65 kg

DRUGS (1)
  1. NEVIRAPINE [Suspect]
     Dosage: 2 TABS, QD, PO
     Route: 048

REACTIONS (4)
  - Muscle spasms [None]
  - Feeling abnormal [None]
  - Paraesthesia [None]
  - Malaise [None]
